FAERS Safety Report 18410211 (Version 1)
Quarter: 2020Q4

REPORT INFORMATION
  Report Type: Spontaneous
  Country: US (occurrence: US)
  Receive Date: 20201021
  Receipt Date: 20201021
  Transmission Date: 20210114
  Serious: Yes (Hospitalization)
  Sender: FDA-Public Use
  Company Number: None

PATIENT
  Age: 26 Month
  Sex: Male

DRUGS (4)
  1. CYPROHEPTADINE. [Concomitant]
     Active Substance: CYPROHEPTADINE
  2. EPANED [Concomitant]
     Active Substance: ENALAPRIL MALEATE
  3. MONTELUKAST [Concomitant]
     Active Substance: MONTELUKAST SODIUM
  4. SILDENAFIL. [Suspect]
     Active Substance: SILDENAFIL
     Indication: HEART DISEASE CONGENITAL
     Dosage: ?          OTHER FREQUENCY:EVERY 8 HOURS;OTHER ROUTE:VIA J-TUBE?
     Dates: start: 20190717

REACTIONS (1)
  - Hospitalisation [None]

NARRATIVE: CASE EVENT DATE: 20201006
